FAERS Safety Report 8764589 (Version 2)
Quarter: 2013Q3

REPORT INFORMATION
  Report Type: Spontaneous
  Country: US (occurrence: US)
  Receive Date: 20120831
  Receipt Date: 20130830
  Transmission Date: 20140515
  Serious: Yes (Other)
  Sender: FDA-Public Use
  Company Number: US-ASTRAZENECA-2012SE57833

PATIENT
  Age: 58 Year
  Sex: Female
  Weight: 83.9 kg

DRUGS (3)
  1. ATACAND [Suspect]
     Indication: HYPERTENSION
     Route: 048
     Dates: start: 2012
  2. VICODIN [Concomitant]
     Indication: PAIN
     Route: 048
  3. DAYQUIL [Concomitant]
     Indication: MULTIPLE ALLERGIES
     Dosage: PRN
     Route: 048

REACTIONS (6)
  - Adverse event [Unknown]
  - Blood pressure increased [Unknown]
  - Vision blurred [Unknown]
  - Anxiety [Unknown]
  - Disturbance in attention [Unknown]
  - Drug dose omission [Unknown]
